FAERS Safety Report 8679558 (Version 2)
Quarter: 2012Q4

REPORT INFORMATION
  Report Type: 
  Country: JP (occurrence: JP)
  Receive Date: 20120724
  Receipt Date: 20120912
  Transmission Date: 20130627
  Serious: Yes (Hospitalization)
  Sender: FDA-Public Use
  Company Number: JP-NAPPMUNDI-MAG-2012-0002199

PATIENT
  Age: 86 Year
  Sex: Male

DRUGS (5)
  1. BUPRENORPHINE TRANSDERMAL SYSTEM [Suspect]
     Indication: PRODUCT USED FOR UNKNOWN INDICATION
     Dosage: 5 mcg, q1h
     Route: 062
     Dates: start: 20120428, end: 20120428
  2. BUPRENORPHINE TRANSDERMAL SYSTEM [Suspect]
     Dosage: 10 mcg, q1h
     Route: 062
     Dates: start: 20120331, end: 20120427
  3. BUPRENORPHINE TRANSDERMAL SYSTEM [Suspect]
     Dosage: 20 mcg, q1h
     Route: 062
     Dates: start: 20120218, end: 20120330
  4. BUPRENORPHINE TRANSDERMAL SYSTEM [Suspect]
     Dosage: 10 mcg, q1h
     Route: 062
     Dates: start: 20111203, end: 20120217
  5. BUPRENORPHINE TRANSDERMAL SYSTEM [Suspect]
     Dosage: 5 mcg, q1h
     Route: 062
     Dates: start: 20111112, end: 20111202

REACTIONS (2)
  - Dizziness [Recovered/Resolved]
  - Pneumonia [Recovered/Resolved]
